FAERS Safety Report 7596259-2 (Version None)
Quarter: 2011Q3

REPORT INFORMATION
  Report Type: 
  Country: None (occurrence: None)
  Receive Date: 20110707
  Receipt Date: 20110629
  Transmission Date: 20111222
  Serious: Yes (Death)
  Sender: FDA-Public Use
  Company Number: AU-PURDUE-USA-2011-0071008

PATIENT
  Age: 28 Year
  Sex: Female
  Weight: 29 kg

DRUGS (2)
  1. OXYCONTIN [Suspect]
     Indication: PRODUCT USED FOR UNKNOWN INDICATION
     Dosage: 40 MG, UNK
  2. OXYCONTIN [Suspect]
     Dosage: 80 MG, DAILY

REACTIONS (2)
  - OVERDOSE [None]
  - BRONCHOPNEUMONIA [None]
